FAERS Safety Report 9224830 (Version 1)
Quarter: 2013Q2

REPORT INFORMATION
  Report Type: Spontaneous
  Country: US (occurrence: US)
  Receive Date: 20130411
  Receipt Date: 20130411
  Transmission Date: 20140414
  Serious: No
  Sender: FDA-Public Use
  Company Number: US-BAYER-2013-045657

PATIENT
  Sex: Female

DRUGS (7)
  1. BETASERON [Suspect]
     Dosage: 0.3 MG, UNK
  2. SIMVASTATIN [Concomitant]
     Dosage: 10 MG, UNK
  3. FLUOXETINE [Concomitant]
     Dosage: 20 MG, UNK
  4. CALCIUM [Concomitant]
     Dosage: UNK
  5. VITAMIN D [Concomitant]
     Dosage: 2000 U, UNK
  6. ASPIRIN [Concomitant]
     Dosage: 81 MG, UNK
  7. FIORICET [Concomitant]

REACTIONS (2)
  - Injection site pruritus [Unknown]
  - Injection site erythema [Unknown]
